FAERS Safety Report 8871862 (Version 1)
Quarter: 2012Q4

REPORT INFORMATION
  Report Type: 
  Country: US (occurrence: US)
  Receive Date: 20121023
  Receipt Date: 20121023
  Transmission Date: 20130627
  Serious: No
  Sender: FDA-Public Use
  Company Number: US-ASTELLAS-2012US006396

PATIENT

DRUGS (4)
  1. PROGRAF [Suspect]
     Indication: RENAL TRANSPLANT
     Dosage: 0.5 mg, Q12 hours
     Route: 048
     Dates: start: 20111101
  2. PROGRAF [Suspect]
     Indication: HEART TRANSPLANT
     Dosage: 2 mg, Q12 hours
     Route: 048
     Dates: start: 20111101
  3. CELLCEPT                           /01275102/ [Concomitant]
     Indication: HEART TRANSPLANT
     Dosage: 500 mg, bid
     Route: 048
     Dates: start: 20111101
  4. CELLCEPT                           /01275102/ [Concomitant]
     Indication: RENAL TRANSPLANT

REACTIONS (1)
  - Fatigue [Not Recovered/Not Resolved]
